FAERS Safety Report 24651350 (Version 2)
Quarter: 2024Q4

REPORT INFORMATION
  Report Type: Spontaneous
  Country: ES (occurrence: ES)
  Receive Date: 20241122
  Receipt Date: 20241221
  Transmission Date: 20250114
  Serious: No
  Sender: AMGEN
  Company Number: ES-ROCHE-10000126420

PATIENT
  Sex: Female
  Weight: 71 kg

DRUGS (4)
  1. TRASTUZUMAB [Suspect]
     Active Substance: TRASTUZUMAB
     Indication: HER2 positive breast cancer
     Dosage: UNK UNK, Q3WK
     Route: 065
     Dates: start: 20220915, end: 20240904
  2. PERJETA [Suspect]
     Active Substance: PERTUZUMAB
     Indication: HER2 positive breast cancer
     Dosage: UNK UNK, Q3WK (33 CYCLE)
     Route: 065
     Dates: start: 20220915, end: 20240904
  3. PACLITAXEL [Suspect]
     Active Substance: PACLITAXEL
     Indication: HER2 positive breast cancer
     Dosage: UNK
     Route: 065
  4. TRASTUZUMAB DERUXTECAN [Suspect]
     Active Substance: TRASTUZUMAB DERUXTECAN
     Indication: HER2 positive breast cancer
     Dosage: 5.4 MG, ONCE EVERY 3 WK
     Route: 065
     Dates: start: 20240925

REACTIONS (2)
  - Drug ineffective [Unknown]
  - Disease progression [Unknown]
